FAERS Safety Report 12818931 (Version 2)
Quarter: 2016Q4

REPORT INFORMATION
  Report Type: Spontaneous
  Country: US (occurrence: US)
  Receive Date: 20161006
  Receipt Date: 20161021
  Transmission Date: 20170207
  Serious: No
  Sender: FDA-Public Use
  Company Number: US-GLAXOSMITHKLINE-US2016GSK145963

PATIENT
  Sex: Female
  Weight: 98.34 kg

DRUGS (1)
  1. NUCALA [Suspect]
     Active Substance: MEPOLIZUMAB
     Indication: ASTHMA
     Dosage: 100 MG, EVERY 4 WEEKS
     Dates: start: 20160712

REACTIONS (3)
  - Cough [Unknown]
  - Drug effect incomplete [Unknown]
  - Dyspnoea [Unknown]
